FAERS Safety Report 9162776 (Version 1)
Quarter: 2013Q1

REPORT INFORMATION
  Report Type: Spontaneous
  Country: US (occurrence: US)
  Receive Date: 20130314
  Receipt Date: 20130314
  Transmission Date: 20140127
  Serious: No
  Sender: FDA-Public Use
  Company Number: US-009507513-1303USA006816

PATIENT
  Age: 6 Year
  Sex: Male
  Weight: 27.21 kg

DRUGS (2)
  1. CLARITIN ORAL SOLUTION [Suspect]
     Indication: HYPERSENSITIVITY
     Dosage: 10 MG, ONCE
     Route: 048
  2. CLARITIN REDITABS 12HR [Concomitant]
     Indication: HYPERSENSITIVITY
     Dosage: 5 MG, ONCE
     Route: 048

REACTIONS (2)
  - Accidental overdose [Recovering/Resolving]
  - No adverse event [Recovering/Resolving]
